FAERS Safety Report 7826652-1 (Version None)
Quarter: 2011Q4

REPORT INFORMATION
  Report Type: 
  Country: None (occurrence: None)
  Receive Date: 20111020
  Receipt Date: 20111010
  Transmission Date: 20120403
  Serious: Yes (Other)
  Sender: FDA-Public Use
  Company Number: CH-JNJFOC-20111004051

PATIENT
  Age: 22 Year
  Sex: Female

DRUGS (2)
  1. INVEGA [Suspect]
     Indication: SCHIZOPHRENIA
     Route: 048
     Dates: start: 20110801, end: 20110801
  2. CLOPIXOL [Concomitant]
     Route: 065
     Dates: end: 20110801

REACTIONS (2)
  - AGORAPHOBIA [None]
  - PSYCHOTIC DISORDER [None]
